FAERS Safety Report 4787272-9 (Version None)
Quarter: 2005Q3

REPORT INFORMATION
  Report Type: 
  Country: None (occurrence: None)
  Receive Date: 20050930
  Receipt Date: 20050921
  Transmission Date: 20060218
  Serious: Yes (Hospitalization)
  Sender: FDA-Public Use
  Company Number: 2005-03541

PATIENT
  Age: 59 Year
  Sex: Female

DRUGS (2)
  1. ALORA [Suspect]
     Indication: HORMONE REPLACEMENT THERAPY
     Dosage: 1 MONTH, TRANSDERMAL
     Route: 062
  2. PROGESTERONE TRANSDERMAL PATCH [Concomitant]

REACTIONS (1)
  - LYMPHANGIOLEIOMYOMATOSIS [None]
